FAERS Safety Report 4646948-4 (Version None)
Quarter: 2005Q2

REPORT INFORMATION
  Report Type: 
  Country: None (occurrence: None)
  Receive Date: 20050331
  Receipt Date: 20050215
  Transmission Date: 20051028
  Serious: No
  Sender: FDA-Public Use
  Company Number: 05P-163-0290706-00

PATIENT
  Age: 50 Year
  Sex: Female
  Weight: 54.4316 kg

DRUGS (8)
  1. HUMIRA [Suspect]
     Indication: RHEUMATOID ARTHRITIS
     Dosage: 40 MG, 1 IN 2 WK, SUBCUTANEOUS
     Route: 058
     Dates: start: 20040101, end: 20050101
  2. HUMIRA [Suspect]
     Indication: RHEUMATOID ARTHRITIS
     Dosage: 40 MG, 1 IN 2 WK, SUBCUTANEOUS
     Route: 058
     Dates: start: 20050101
  3. PREDNISONE [Concomitant]
  4. DOXEPIN HCL [Concomitant]
  5. SULFASALAZINE [Concomitant]
  6. TRIAMTERENE [Concomitant]
  7. MELOXICAM [Concomitant]
  8. MULTI-VITAMINS [Concomitant]

REACTIONS (2)
  - LARYNGITIS [None]
  - NASOPHARYNGITIS [None]
